FAERS Safety Report 6522610-8 (Version None)
Quarter: 2009Q4

REPORT INFORMATION
  Report Type: 
  Country: None (occurrence: None)
  Receive Date: 20091230
  Receipt Date: 20091217
  Transmission Date: 20100525
  Serious: Yes (Hospitalization)
  Sender: FDA-Public Use
  Company Number: PHHY2009FR56778

PATIENT
  Sex: Male

DRUGS (2)
  1. RITALIN [Suspect]
     Indication: NARCOLEPSY
     Dosage: 10 MG, BID
  2. XYREM [Suspect]
     Indication: NARCOLEPSY
     Dosage: 4.5 MG, BID

REACTIONS (1)
  - HYPERKALAEMIA [None]
